FAERS Safety Report 6196604-9 (Version None)
Quarter: 2009Q2

REPORT INFORMATION
  Report Type: 
  Country: None (occurrence: None)
  Receive Date: 20090518
  Receipt Date: 20090518
  Transmission Date: 20091009
  Serious: Yes (Other)
  Sender: FDA-Public Use
  Company Number: None

PATIENT
  Age: 21 Year
  Sex: Female
  Weight: 63.5036 kg

DRUGS (3)
  1. PROMETHAZINE HCL (25MG/ 20ML ETHEX [Suspect]
     Indication: NAUSEA
     Dosage: 18.5-25MG Q 4-6 HRS PRN PO
     Route: 048
     Dates: start: 20090508, end: 20090513
  2. PROMETHAZINE HCL (25MG/ 20ML ETHEX [Suspect]
     Indication: SEDATION
     Dosage: 18.5-25MG Q 4-6 HRS PRN PO
     Route: 048
     Dates: start: 20090508, end: 20090513
  3. PROMETHAZINE HCL (25MG/ 20ML ETHEX [Suspect]
     Indication: VOMITING
     Dosage: 18.5-25MG Q 4-6 HRS PRN PO
     Route: 048
     Dates: start: 20090508, end: 20090513

REACTIONS (5)
  - ANXIETY [None]
  - DIPLOPIA [None]
  - DRUG INEFFECTIVE [None]
  - HALLUCINATIONS, MIXED [None]
  - IRRITABILITY [None]
